FAERS Safety Report 17784869 (Version 2)
Quarter: 2020Q3

REPORT INFORMATION
  Report Type: Report from Study
  Country: US (occurrence: US)
  Receive Date: 20200513
  Receipt Date: 20200811
  Transmission Date: 20201102
  Serious: Yes (Hospitalization, Other)
  Sender: FDA-Public Use
  Company Number: US-BRISTOL-MYERS SQUIBB COMPANY-BMS-2020-033080

PATIENT
  Age: 61 Year
  Sex: Male
  Weight: 81.2 kg

DRUGS (3)
  1. NIVOLUMAB [Suspect]
     Active Substance: NIVOLUMAB
     Indication: ACUTE MYELOID LEUKAEMIA
     Dosage: 240 MILLIGRAM
     Route: 065
     Dates: start: 20200320, end: 20200403
  2. DECITABINE. [Suspect]
     Active Substance: DECITABINE
     Indication: ACUTE MYELOID LEUKAEMIA
     Dosage: 410 MILLIGRAM
     Route: 042
     Dates: start: 20200320, end: 20200329
  3. VENETOCLAX. [Suspect]
     Active Substance: VENETOCLAX
     Indication: ACUTE MYELOID LEUKAEMIA
     Dosage: 6700 MILLIGRAM
     Route: 042
     Dates: start: 20200320, end: 20200409

REACTIONS (2)
  - Febrile neutropenia [Recovered/Resolved]
  - Fungal infection [Unknown]

NARRATIVE: CASE EVENT DATE: 202004
